FAERS Safety Report 14784931 (Version 3)
Quarter: 2018Q2

REPORT INFORMATION
  Report Type: Spontaneous
  Country: FR (occurrence: FR)
  Receive Date: 20180420
  Receipt Date: 20180517
  Transmission Date: 20180711
  Serious: Yes (Death, Life-Threatening)
  Sender: FDA-Public Use
  Company Number: FR-SA-2018SA113752

PATIENT
  Age: 87 Year
  Sex: Male
  Weight: 98 kg

DRUGS (8)
  1. LOVENOX [Suspect]
     Active Substance: ENOXAPARIN SODIUM
     Indication: HIP SURGERY
     Route: 065
     Dates: start: 20180319
  2. LOVENOX [Suspect]
     Active Substance: ENOXAPARIN SODIUM
     Indication: HIP SURGERY
     Route: 058
     Dates: start: 20180322, end: 20180324
  3. BIPROFENID [Concomitant]
     Active Substance: KETOPROFEN
     Dosage: DOSE:1 UNIT(S)
     Route: 048
     Dates: start: 20180320
  4. ATACAND [Concomitant]
     Active Substance: CANDESARTAN CILEXETIL
     Dosage: DOSE:0.5 UNIT(S)
     Route: 048
     Dates: start: 20180319
  5. LEVOTHYROX [Concomitant]
     Active Substance: LEVOTHYROXINE
     Dosage: DOSE:1 UNIT(S)
     Route: 048
     Dates: start: 20180319
  6. DAFALGAN [Concomitant]
     Active Substance: ACETAMINOPHEN
     Dosage: DOSE:3 UNIT(S)
     Route: 065
     Dates: start: 20180320
  7. EXACYL [Concomitant]
     Active Substance: TRANEXAMIC ACID
     Dosage: DOSE:2 UNIT(S)
     Route: 048
     Dates: start: 20180319, end: 20180320
  8. SERESTA [Concomitant]
     Active Substance: OXAZEPAM
     Dosage: DOSE:1 UNIT(S)
     Route: 048
     Dates: start: 20180319

REACTIONS (5)
  - Apparent life threatening event [Fatal]
  - Renal failure [Fatal]
  - Intestinal ischaemia [Fatal]
  - Haematoma [Fatal]
  - Anaemia [Fatal]

NARRATIVE: CASE EVENT DATE: 20180403
